FAERS Safety Report 10640593 (Version 2)
Quarter: 2015Q1

REPORT INFORMATION
  Report Type: Spontaneous
  Country: TR (occurrence: TR)
  Receive Date: 20141209
  Receipt Date: 20150115
  Transmission Date: 20150720
  Serious: Yes (Hospitalization, Other)
  Sender: FDA-Public Use
  Company Number: TR-PFIZER INC-2014333111

PATIENT
  Age: 45 Year
  Sex: Male

DRUGS (1)
  1. PHENYTOIN SODIUM. [Suspect]
     Active Substance: PHENYTOIN SODIUM
     Indication: MYOTONIC DYSTROPHY
     Dosage: UNK

REACTIONS (16)
  - Overlap syndrome [Recovered/Resolved]
  - Acute generalised exanthematous pustulosis [Recovered/Resolved]
  - Pyrexia [Recovered/Resolved]
  - Liver function test abnormal [Recovered/Resolved]
  - Drug reaction with eosinophilia and systemic symptoms [Recovered/Resolved]
  - Erythema [Recovered/Resolved]
  - Neutrophilia [Recovered/Resolved]
  - Rash pustular [Recovered/Resolved]
  - Leukocytosis [Recovered/Resolved]
  - Lymphopenia [Recovered/Resolved]
  - Albuminuria [Recovered/Resolved]
  - Face oedema [Recovered/Resolved]
  - Eosinophilia [Recovered/Resolved]
  - Toxic skin eruption [Recovered/Resolved]
  - C-reactive protein increased [Recovered/Resolved]
  - Eye oedema [Recovered/Resolved]
